FAERS Safety Report 4980189-6 (Version None)
Quarter: 2006Q2

REPORT INFORMATION
  Report Type: 
  Country: None (occurrence: None)
  Receive Date: 20060424
  Receipt Date: 20060411
  Transmission Date: 20061013
  Serious: Yes (Hospitalization)
  Sender: FDA-Public Use
  Company Number: GB-NOVOPROD-252381

PATIENT
  Age: 56 Year
  Sex: Male
  Weight: 88 kg

DRUGS (10)
  1. LEVEMIR [Suspect]
     Indication: DIABETES MELLITUS
     Dosage: 20 IU, QD
     Route: 058
     Dates: start: 20040817
  2. HUMALOG [Concomitant]
     Dosage: 27 IU, QD
     Route: 058
     Dates: start: 19880513
  3. IRBESARTAN [Concomitant]
     Dosage: 150 MG, QD
     Route: 048
     Dates: start: 20051025
  4. ATORVASTATIN [Concomitant]
     Dosage: 40 MG, QD
     Route: 048
     Dates: start: 19970806
  5. RAMIPRIL [Concomitant]
     Dosage: 10 MG, QD
     Route: 048
     Dates: start: 20030101
  6. ISOSORBIDE MONONITRATE [Concomitant]
     Dosage: 20 MG, QD
     Route: 048
     Dates: start: 19920219
  7. AMLODIPINE [Concomitant]
     Dosage: 5 MG, QD
     Route: 048
     Dates: start: 20020101
  8. CLOPIDOGREL [Concomitant]
     Dosage: 75 MG, QD
     Route: 048
     Dates: start: 20040510
  9. FRUSEMIDE [Concomitant]
     Dosage: 40 MG, QD
     Route: 048
     Dates: start: 20050228
  10. VITAMIN D [Concomitant]
     Dosage: 1 TAB, QD
     Route: 048
     Dates: start: 20050101

REACTIONS (2)
  - FALL [None]
  - TIBIA FRACTURE [None]
